FAERS Safety Report 10684717 (Version 1)
Quarter: 2014Q4

REPORT INFORMATION
  Report Type: Spontaneous
  Country: US (occurrence: None)
  Receive Date: 20141230
  Receipt Date: 20141230
  Transmission Date: 20150529
  Serious: Yes (Life-Threatening, Disabling, Other)
  Sender: FDA-Public Use
  Company Number: None

PATIENT
  Age: 41 Year
  Sex: Female
  Weight: 65.77 kg

DRUGS (1)
  1. MACROBID [Suspect]
     Active Substance: NITROFURANTOIN\NITROFURANTOIN MONOHYDRATE
     Indication: URINARY TRACT INFECTION
     Dosage: 1 PILL
     Route: 048
     Dates: start: 20141222, end: 20141224

REACTIONS (23)
  - Abdominal pain [None]
  - Feeling of body temperature change [None]
  - Musculoskeletal stiffness [None]
  - Fatigue [None]
  - Productive cough [None]
  - Decreased appetite [None]
  - Headache [None]
  - Abdominal discomfort [None]
  - Myalgia [None]
  - Pyrexia [None]
  - Pain [None]
  - Thirst [None]
  - Chromaturia [None]
  - Dyspnoea [None]
  - Pain of skin [None]
  - Piloerection [None]
  - Insomnia [None]
  - Chest pain [None]
  - Neck pain [None]
  - Asthenia [None]
  - Arthralgia [None]
  - Hyperhidrosis [None]
  - Rhinorrhoea [None]

NARRATIVE: CASE EVENT DATE: 20141222
